FAERS Safety Report 25536304 (Version 1)
Quarter: 2025Q3

REPORT INFORMATION
  Report Type: Report from Study
  Country: US (occurrence: US)
  Receive Date: 20250709
  Receipt Date: 20250709
  Transmission Date: 20251021
  Serious: No
  Sender: TG THERAPEUTICS
  Company Number: US-TG THERAPEUTICS INC.-TGT005260

PATIENT

DRUGS (2)
  1. UBLITUXIMAB [Suspect]
     Active Substance: UBLITUXIMAB
     Indication: Multiple sclerosis
     Route: 042
     Dates: start: 20240701, end: 20240701
  2. UBLITUXIMAB [Suspect]
     Active Substance: UBLITUXIMAB
     Route: 042
     Dates: start: 20241231, end: 20241231

REACTIONS (8)
  - Malaise [Unknown]
  - Incontinence [Unknown]
  - Somnolence [Unknown]
  - Rhinorrhoea [Unknown]
  - Rash [Unknown]
  - Urticaria [Unknown]
  - Asthenia [Unknown]
  - Fatigue [Unknown]
